FAERS Safety Report 16483020 (Version 1)
Quarter: 2019Q2

REPORT INFORMATION
  Report Type: Spontaneous
  Country: US (occurrence: US)
  Receive Date: 20190627
  Receipt Date: 20190627
  Transmission Date: 20190711
  Serious: Yes (Other)
  Sender: FDA-Public Use
  Company Number: US-BAYER-2019-120236

PATIENT
  Age: 19 Year
  Sex: Female

DRUGS (4)
  1. ACETYLSALICYLIC ACID (CARDIO) [Suspect]
     Active Substance: ASPIRIN
  2. NAPROXEN SODIUM HIGH DOSE (} 220 MG) [Suspect]
     Active Substance: NAPROXEN SODIUM
  3. IBUPROFEN. [Suspect]
     Active Substance: IBUPROFEN
  4. PARACETAMOL [Suspect]
     Active Substance: ACETAMINOPHEN

REACTIONS (2)
  - Suicide attempt [None]
  - Intentional overdose [None]
